FAERS Safety Report 5271325-5 (Version None)
Quarter: 2007Q1

REPORT INFORMATION
  Report Type: 
  Country: None (occurrence: None)
  Receive Date: 20070321
  Receipt Date: 20070316
  Transmission Date: 20070707
  Serious: Yes (Other)
  Sender: FDA-Public Use
  Company Number: JP-GLAXOSMITHKLINE-B0462715A

PATIENT
  Age: 15 Year
  Sex: Female

DRUGS (1)
  1. AQUAFRESH EXTREME CLEAN WHITENING TOOTHPASTE [Suspect]
     Indication: DENTAL CLEANING
     Dates: start: 20070310, end: 20070310

REACTIONS (5)
  - COLD SWEAT [None]
  - HAEMORRHAGE [None]
  - PALPITATIONS [None]
  - PERIPHERAL COLDNESS [None]
  - RASH [None]
